FAERS Safety Report 10264619 (Version 1)
Quarter: 2014Q2

REPORT INFORMATION
  Report Type: Spontaneous
  Country: US (occurrence: None)
  Receive Date: 20140625
  Receipt Date: 20140625
  Transmission Date: 20141212
  Serious: Yes (Death, Hospitalization)
  Sender: FDA-Public Use
  Company Number: None

PATIENT
  Age: 61 Year
  Sex: Male
  Weight: 91.4 kg

DRUGS (2)
  1. SULFAMETHOXAZOLE/TRIMETHOPRIM [Suspect]
     Indication: PNEUMOCYSTIS JIROVECII PNEUMONIA
     Route: 048
     Dates: start: 20140504, end: 20140522
  2. MOXIFLOXACIN [Suspect]
     Indication: CONJUNCTIVITIS
     Dates: start: 20140521, end: 20140526

REACTIONS (3)
  - Stevens-Johnson syndrome [None]
  - Fall [None]
  - Erythema multiforme [None]
